FAERS Safety Report 9110322 (Version 1)
Quarter: 2013Q1

REPORT INFORMATION
  Report Type: Report from Study
  Country: RU (occurrence: RU)
  Receive Date: 20130222
  Receipt Date: 20130222
  Transmission Date: 20140127
  Serious: Yes (Death)
  Sender: FDA-Public Use
  Company Number: RU-PFIZER INC-2013065248

PATIENT
  Age: 1 Month
  Sex: 0

DRUGS (4)
  1. ETOPOSIDE [Suspect]
     Indication: NEUROBLASTOMA
     Dosage: UNK
  2. CARBOPLATIN [Suspect]
     Indication: NEUROBLASTOMA
     Dosage: UNK
  3. DOXORUBICIN HCL [Suspect]
     Indication: NEUROBLASTOMA
     Dosage: UNK
  4. CYCLOPHOSPHAMIDE [Suspect]
     Indication: NEUROBLASTOMA
     Dosage: UNK

REACTIONS (1)
  - Toxicity to various agents [Fatal]
